FAERS Safety Report 9458971 (Version 1)
Quarter: 2013Q3

REPORT INFORMATION
  Report Type: Spontaneous
  Country: GB (occurrence: GB)
  Receive Date: 20130814
  Receipt Date: 20130814
  Transmission Date: 20140515
  Serious: Yes (Life-Threatening, Other)
  Sender: FDA-Public Use
  Company Number: GB-UCBSA-094686

PATIENT
  Age: 65 Year
  Sex: Female
  Weight: 73.1 kg

DRUGS (5)
  1. CERTOLIZUMAB PEGOL [Suspect]
     Indication: RHEUMATOID ARTHRITIS
     Dates: start: 20130501, end: 20130705
  2. FOLIC ACID [Concomitant]
     Dosage: UNKNOWN DOSE
  3. NAPROXEN [Concomitant]
     Dosage: UNKNOWN DOSE
  4. LEVOTHYROXINE [Concomitant]
     Dosage: UNKNOWN DOSE
  5. METHOTREXATE [Concomitant]
     Dosage: UNKNOWN DOSE

REACTIONS (1)
  - Pulmonary fibrosis [Not Recovered/Not Resolved]
